FAERS Safety Report 6379194-7 (Version None)
Quarter: 2009Q3

REPORT INFORMATION
  Report Type: 
  Country: None (occurrence: None)
  Receive Date: 20090928
  Receipt Date: 20090924
  Transmission Date: 20100115
  Serious: Yes (Death)
  Sender: FDA-Public Use
  Company Number: US-GENENTECH-290433

PATIENT
  Sex: Female

DRUGS (8)
  1. AVASTIN [Suspect]
     Indication: BREAST CANCER
     Dosage: 1225 MG, X1
     Route: 042
     Dates: start: 20090612
  2. AVASTIN [Suspect]
     Dosage: 830 MG, Q2W
     Route: 042
     Dates: start: 20090625, end: 20090723
  3. GEMZAR [Suspect]
     Indication: BREAST CANCER
     Dosage: 2280 MG, Q2W
     Route: 042
     Dates: start: 20090612, end: 20090723
  4. PACLITAXEL [Concomitant]
     Indication: BREAST CANCER
     Dosage: UNK
  5. ANTIBIOTICS (NOT SPECIFIED) [Concomitant]
     Indication: DRUG USE FOR UNKNOWN INDICATION
     Dosage: UNK
  6. STEROIDS (UNK INGREDIENTS) [Concomitant]
     Indication: DRUG USE FOR UNKNOWN INDICATION
     Dosage: UNK
  7. PLATELETS [Concomitant]
     Indication: DRUG USE FOR UNKNOWN INDICATION
     Dosage: UNK
  8. ACYCLOVIR [Concomitant]
     Indication: DRUG USE FOR UNKNOWN INDICATION
     Dosage: UNK

REACTIONS (3)
  - DEATH [None]
  - LOBAR PNEUMONIA [None]
  - PULMONARY HAEMORRHAGE [None]
